FAERS Safety Report 8302492-4 (Version None)
Quarter: 2012Q2

REPORT INFORMATION
  Report Type: 
  Country: None (occurrence: None)
  Receive Date: 20120420
  Receipt Date: 20120410
  Transmission Date: 20120825
  Serious: Yes (Hospitalization)
  Sender: FDA-Public Use
  Company Number: JP-BRISTOL-MYERS SQUIBB COMPANY-16495590

PATIENT
  Age: 26 Year
  Sex: Female

DRUGS (2)
  1. ABILIFY [Suspect]
     Indication: SCHIZOPHRENIA
     Dosage: AT 12MG TABS
     Route: 048
  2. ZYPREXA [Suspect]
     Dosage: TAB
     Route: 048

REACTIONS (1)
  - BONE MARROW FAILURE [None]
